FAERS Safety Report 5093858-7 (Version None)
Quarter: 2006Q3

REPORT INFORMATION
  Report Type: 
  Country: None (occurrence: None)
  Receive Date: 20060831
  Receipt Date: 20060511
  Transmission Date: 20061208
  Serious: Yes (Death, Hospitalization)
  Sender: FDA-Public Use
  Company Number: JP-BRISTOL-MYERS SQUIBB COMPANY-13375464

PATIENT
  Age: 84 Year
  Sex: Male

DRUGS (3)
  1. TAXOL [Suspect]
     Indication: GASTRIC CANCER
     Route: 041
     Dates: start: 20060301, end: 20060419
  2. TS-1 [Suspect]
     Indication: GASTRIC CANCER
     Route: 048
     Dates: start: 20060227, end: 20060416
  3. RADIOTHERAPY [Suspect]
     Indication: OESOPHAGEAL CARCINOMA

REACTIONS (2)
  - INTERSTITIAL LUNG DISEASE [None]
  - WHITE BLOOD CELL COUNT DECREASED [None]
